FAERS Safety Report 8812049 (Version 3)
Quarter: 2012Q4

REPORT INFORMATION
  Report Type: 
  Country: FR (occurrence: FR)
  Receive Date: 20120927
  Receipt Date: 20121012
  Transmission Date: 20130627
  Serious: Yes (Other)
  Sender: FDA-Public Use
  Company Number: FR-ROCHE-1137943

PATIENT

DRUGS (1)
  1. AVASTIN [Suspect]
     Indication: GASTROINTESTINAL CARCINOMA

REACTIONS (1)
  - Pulmonary fibrosis [Unknown]
